FAERS Safety Report 17372412 (Version 3)
Quarter: 2020Q1

REPORT INFORMATION
  Report Type: Other
  Country: FI (occurrence: FI)
  Receive Date: 20200205
  Receipt Date: 20200318
  Transmission Date: 20200409
  Serious: Yes (Other)
  Sender: FDA-Public Use
  Company Number: FI-ASPEN-GLO2020FI000675

PATIENT
  Age: 61 Year
  Sex: Male

DRUGS (8)
  1. VELCADE [Suspect]
     Active Substance: BORTEZOMIB
     Indication: AMYLOIDOSIS
     Route: 042
  2. REVLIMID [Suspect]
     Active Substance: LENALIDOMIDE
     Dosage: 10 MG EVERY 2 DAYS
     Route: 065
     Dates: start: 201701
  3. REVLIMID [Suspect]
     Active Substance: LENALIDOMIDE
     Dosage: EVERY 3 WEEKS AND ONE PAUSE WEEK
     Route: 065
     Dates: start: 201701
  4. DEXAMETHASONE. [Suspect]
     Active Substance: DEXAMETHASONE
     Indication: AMYLOIDOSIS
     Dosage: UNK
     Route: 065
  5. VELCADE [Suspect]
     Active Substance: BORTEZOMIB
     Dosage: EVERY 4 WEEKS AND ONE PAUSE WEEK
     Route: 042
     Dates: start: 201304
  6. DEXAMETHASONE. [Suspect]
     Active Substance: DEXAMETHASONE
     Dosage: EVERY 3 WEEKS AND ONE PAUSE WEEK
     Route: 065
     Dates: start: 201701
  7. REVLIMID [Suspect]
     Active Substance: LENALIDOMIDE
     Indication: AMYLOIDOSIS
     Route: 065
  8. VELCADE [Suspect]
     Active Substance: BORTEZOMIB
     Dosage: EVERY 3 WEEKS AND ONE PAUSE WEEK
     Route: 042
     Dates: start: 201701

REACTIONS (3)
  - Off label use [Unknown]
  - Product use in unapproved indication [Unknown]
  - Respiratory tract infection [Recovered/Resolved]
